FAERS Safety Report 9387630 (Version 1)
Quarter: 2013Q3

REPORT INFORMATION
  Report Type: Spontaneous
  Country: VE (occurrence: VE)
  Receive Date: 20130708
  Receipt Date: 20130708
  Transmission Date: 20140515
  Serious: Yes (Death, Other)
  Sender: FDA-Public Use
  Company Number: VE-JNJFOC-20130619781

PATIENT
  Sex: 0

DRUGS (4)
  1. DOXORUBICIN HYDROCHLORIDE [Suspect]
     Indication: LYMPHOMA AIDS RELATED
     Dosage: ON DAY 1 FOR EVERY 21 DAYS
     Route: 042
  2. CYCLOPHOSPHAMIDE [Suspect]
     Indication: LYMPHOMA AIDS RELATED
     Dosage: ON DAY 1; EVERY 21 DAYS
     Route: 065
  3. VINCRISTINE [Suspect]
     Indication: LYMPHOMA AIDS RELATED
     Dosage: 1.2 MG/M^2 UO TO A MAXIMUM OF 2 MG ON DAY 1; EVERY 21 DAYS
     Route: 065
  4. PREDNISONE [Suspect]
     Indication: LYMPHOMA AIDS RELATED
     Dosage: FOR 5 DAYS; EVERY 21 DAYS
     Route: 048

REACTIONS (6)
  - Non-Hodgkin^s lymphoma recurrent [Fatal]
  - Opportunistic infection [Fatal]
  - Non-Hodgkin^s lymphoma [Fatal]
  - Neutropenia [Unknown]
  - Febrile neutropenia [Unknown]
  - Transaminases increased [Unknown]
